FAERS Safety Report 11704731 (Version 2)
Quarter: 2015Q4

REPORT INFORMATION
  Report Type: Spontaneous
  Country: JP (occurrence: JP)
  Receive Date: 20151106
  Receipt Date: 20151231
  Transmission Date: 20160304
  Serious: No
  Sender: FDA-Public Use
  Company Number: JP-ASTRAZENECA-2015SF07311

PATIENT
  Age: 23 Year
  Sex: Female

DRUGS (2)
  1. DOGMATYL [Suspect]
     Active Substance: SULPIRIDE
     Indication: SCHIZOPHRENIA
     Route: 048
     Dates: start: 20151023, end: 201510
  2. SEROQUEL [Suspect]
     Active Substance: QUETIAPINE FUMARATE
     Indication: SCHIZOPHRENIA
     Route: 048
     Dates: start: 20151023

REACTIONS (1)
  - Galactorrhoea [Recovered/Resolved]
